FAERS Safety Report 6081375-7 (Version None)
Quarter: 2009Q1

REPORT INFORMATION
  Report Type: 
  Country: None (occurrence: None)
  Receive Date: 20090218
  Receipt Date: 20090211
  Transmission Date: 20090719
  Serious: Yes (Other)
  Sender: FDA-Public Use
  Company Number: US-JNJFOC-20090203378

PATIENT
  Sex: Female
  Weight: 105.24 kg

DRUGS (8)
  1. DURAGESIC-100 [Suspect]
     Route: 062
  2. DURAGESIC-100 [Suspect]
     Indication: PAIN
     Route: 062
  3. AMBIEN CR [Concomitant]
     Indication: SLEEP DISORDER THERAPY
     Route: 048
  4. PROVIGIL [Concomitant]
     Indication: HYPERSOMNIA
     Route: 048
  5. ENBREL [Concomitant]
     Indication: PSORIATIC ARTHROPATHY
     Route: 030
  6. FENTORA [Concomitant]
     Indication: PAIN
     Route: 048
  7. LEXAPRO [Concomitant]
     Indication: DEPRESSION
     Route: 048
  8. MAXZIDE [Concomitant]
     Indication: DIURETIC THERAPY
     Route: 048

REACTIONS (4)
  - CONVULSION [None]
  - DERMATITIS CONTACT [None]
  - PRE-ECLAMPSIA [None]
  - WRONG TECHNIQUE IN DRUG USAGE PROCESS [None]
